FAERS Safety Report 16336187 (Version 1)
Quarter: 2019Q2

REPORT INFORMATION
  Report Type: Spontaneous
  Country: FR (occurrence: FR)
  Receive Date: 20190521
  Receipt Date: 20190521
  Transmission Date: 20190711
  Serious: Yes (Hospitalization, Other)
  Sender: FDA-Public Use
  Company Number: FR-GLAXOSMITHKLINE-FR2019GSK087671

PATIENT
  Age: 64 Year
  Sex: Male
  Weight: 81 kg

DRUGS (6)
  1. ACYCLOVIR. [Suspect]
     Active Substance: ACYCLOVIR
     Dosage: UNK (3 X 1 GR) DILUTED IN 300 ML OF SERUM SALINE (3.33 MG ACYCLOVIR/ML)
  2. ACYCLOVIR. [Suspect]
     Active Substance: ACYCLOVIR
     Dosage: 750 MG, TID
  3. ACYCLOVIR. [Suspect]
     Active Substance: ACYCLOVIR
     Indication: VARICELLA ZOSTER VIRUS INFECTION
     Dosage: 500 MG, TID
  4. AMOXICILLIN. [Concomitant]
     Active Substance: AMOXICILLIN
     Indication: VARICELLA ZOSTER VIRUS INFECTION
     Dosage: 12 G, QD
  5. ACYCLOVIR. [Suspect]
     Active Substance: ACYCLOVIR
     Dosage: 15 MG/KG, TID (THAT IS, 3* 1.2 G)
  6. METFORMIN [Concomitant]
     Active Substance: METFORMIN HYDROCHLORIDE
     Indication: TYPE 2 DIABETES MELLITUS
     Dosage: UNK

REACTIONS (11)
  - Dizziness [Recovering/Resolving]
  - Speech disorder [Recovering/Resolving]
  - Acute kidney injury [Recovering/Resolving]
  - Overdose [Unknown]
  - Neurotoxicity [Unknown]
  - Gait disturbance [Recovering/Resolving]
  - Confusional state [Recovering/Resolving]
  - Dyspepsia [Unknown]
  - Aphasia [Recovering/Resolving]
  - Nervous system disorder [Recovering/Resolving]
  - Nephropathy toxic [Recovering/Resolving]

NARRATIVE: CASE EVENT DATE: 20180406
